FAERS Safety Report 7250412-6 (Version None)
Quarter: 2011Q1

REPORT INFORMATION
  Report Type: 
  Country: None (occurrence: None)
  Receive Date: 20110128
  Receipt Date: 20110120
  Transmission Date: 20110831
  Serious: Yes (Other)
  Sender: FDA-Public Use
  Company Number: AU-ROCHE-752530

PATIENT
  Sex: Male

DRUGS (2)
  1. DIAZEPAM [Concomitant]
     Route: 048
  2. ACTEMRA [Suspect]
     Indication: RHEUMATOID ARTHRITIS
     Dosage: FORM; INFUSION.
     Route: 042
     Dates: start: 20110120

REACTIONS (2)
  - SENSORY DISTURBANCE [None]
  - HYPERTENSION [None]
